FAERS Safety Report 25155397 (Version 1)
Quarter: 2025Q2

REPORT INFORMATION
  Report Type: Spontaneous
  Country: US (occurrence: US)
  Receive Date: 20250403
  Receipt Date: 20250403
  Transmission Date: 20250717
  Serious: No
  Sender: ROCHE
  Company Number: US-ROCHE-10000246227

PATIENT
  Sex: Female

DRUGS (2)
  1. XOLAIR PFS [Suspect]
     Active Substance: OMALIZUMAB
     Indication: Asthma
     Dosage: STRENGTH: 150 MG/ML AND 75MG/0.5 ML, ONGOING
     Route: 058
     Dates: start: 202302
  2. XOLAIR PFS [Suspect]
     Active Substance: OMALIZUMAB

REACTIONS (2)
  - Bronchitis [Unknown]
  - Asthma [Unknown]
